FAERS Safety Report 18071643 (Version 2)
Quarter: 2020Q4

REPORT INFORMATION
  Report Type: Spontaneous
  Country: JP (occurrence: JP)
  Receive Date: 20200727
  Receipt Date: 20201210
  Transmission Date: 20210113
  Serious: Yes (Hospitalization, Other)
  Sender: FDA-Public Use
  Company Number: JP-AMGEN-JPNSP2020117983

PATIENT
  Sex: Female

DRUGS (2)
  1. BLINCYTO [Suspect]
     Active Substance: BLINATUMOMAB
     Indication: ACUTE LYMPHOCYTIC LEUKAEMIA
     Dosage: 9 MICROGRAM
     Route: 042
     Dates: start: 20200625, end: 20200701
  2. BLINCYTO [Suspect]
     Active Substance: BLINATUMOMAB
     Dosage: 28 MICROGRAM
     Route: 042
     Dates: start: 20200702, end: 202007

REACTIONS (4)
  - Acute lymphocytic leukaemia recurrent [Unknown]
  - B-lymphocyte count decreased [Unknown]
  - Enterocolitis [Recovered/Resolved]
  - Unevaluable event [Unknown]
